FAERS Safety Report 10932960 (Version 1)
Quarter: 2015Q1

REPORT INFORMATION
  Report Type: Spontaneous
  Country: US (occurrence: None)
  Receive Date: 20150319
  Receipt Date: 20150319
  Transmission Date: 20150721
  Serious: No
  Sender: FDA-Public Use
  Company Number: 2015CT000017

PATIENT
  Age: 74 Year
  Sex: Female
  Weight: 52.16 kg

DRUGS (9)
  1. MULTI VITAMIN ONE A DAY [Concomitant]
  2. VITAMIN B [Concomitant]
     Active Substance: VITAMIN B
  3. CELEBREX [Concomitant]
     Active Substance: CELECOXIB
  4. VERAPAMIL [Concomitant]
     Active Substance: VERAPAMIL HYDROCHLORIDE
  5. LIPITOR [Concomitant]
     Active Substance: ATORVASTATIN CALCIUM
  6. KORLYM [Suspect]
     Active Substance: MIFEPRISTONE
     Indication: CUSHING^S SYNDROME
     Route: 048
     Dates: start: 20140527
  7. ASPIRIN. [Concomitant]
     Active Substance: ASPIRIN
  8. PLAVIX [Concomitant]
     Active Substance: CLOPIDOGREL BISULFATE
  9. ATENOLOL. [Concomitant]
     Active Substance: ATENOLOL

REACTIONS (3)
  - Back pain [None]
  - Abdominal pain [None]
  - Tinnitus [None]

NARRATIVE: CASE EVENT DATE: 2014
